FAERS Safety Report 24097345 (Version 1)
Quarter: 2024Q3

REPORT INFORMATION
  Report Type: Spontaneous
  Country: US (occurrence: US)
  Receive Date: 20240716
  Receipt Date: 20240716
  Transmission Date: 20241017
  Serious: No
  Sender: ACER THERAPEUTICS
  Company Number: US-ACER THERAPEUTICS INC.-2024-SPO-OLP-0003

PATIENT

DRUGS (1)
  1. OLPRUVA [Suspect]
     Active Substance: SODIUM PHENYLBUTYRATE
     Indication: Product used for unknown indication
     Route: 065

REACTIONS (1)
  - Vomiting [Unknown]
